FAERS Safety Report 7385340-9 (Version None)
Quarter: 2011Q1

REPORT INFORMATION
  Report Type: 
  Country: None (occurrence: None)
  Receive Date: 20110330
  Receipt Date: 20100921
  Transmission Date: 20110831
  Serious: No
  Sender: FDA-Public Use
  Company Number: US-MYLANLABS-2010S1017298

PATIENT
  Age: 39 Year
  Sex: Female
  Weight: 47.63 kg

DRUGS (2)
  1. EMSAM [Suspect]
     Indication: DEPRESSION
     Dosage: CHANGED PATCHES QD
     Route: 062
     Dates: start: 20100817
  2. SAPHRIS [Concomitant]

REACTIONS (2)
  - APPLICATION SITE URTICARIA [None]
  - APPLICATION SITE PRURITUS [None]
